FAERS Safety Report 8495614-6 (Version None)
Quarter: 2012Q3

REPORT INFORMATION
  Report Type: 
  Country: None (occurrence: None)
  Receive Date: 20120709
  Receipt Date: 20120628
  Transmission Date: 20120928
  Serious: Yes (Hospitalization)
  Sender: FDA-Public Use
  Company Number: FR-ROCHE-1082843

PATIENT
  Age: 69 Year
  Sex: Male

DRUGS (21)
  1. PERMIXON [Concomitant]
     Route: 048
  2. FUROSEMIDE TAB [Concomitant]
     Route: 048
  3. PIRACETAM [Concomitant]
     Route: 048
  4. TRAMADOL HCL [Concomitant]
     Dosage: AS REQUIRED
     Route: 048
  5. NOVORAPID FLEXPEN [Concomitant]
     Route: 058
  6. DIGOXIN [Concomitant]
  7. ALLOPURINOL [Concomitant]
     Route: 048
  8. ACETAMINOPHEN [Concomitant]
     Dosage: AS REQUIRED
     Route: 048
  9. BISOPROLOL FUMARATE [Concomitant]
     Route: 048
  10. COLECALCIFEROL [Concomitant]
     Route: 048
  11. TETRAZEPAM RATIOPHARM [Concomitant]
     Route: 048
  12. NOVOMIX 30 FLEXPEN [Concomitant]
     Route: 058
  13. METHOXY POLYETHYLENE GLYCOL-EPOETIN BETA [Concomitant]
     Route: 058
  14. CLONAZEPAM [Suspect]
     Indication: NEUROPATHY PERIPHERAL
     Route: 048
     Dates: end: 20110317
  15. IRBESARTAN AND HYDROCHLOROTHIAZIDE [Concomitant]
     Route: 048
  16. PREVISCAN [Suspect]
     Indication: NEUROPATHY PERIPHERAL
     Route: 048
     Dates: end: 20120318
  17. OMEXEL L.P. [Concomitant]
     Route: 048
  18. CREON [Concomitant]
     Dosage: IU
     Route: 048
  19. CALCIUM NOS [Concomitant]
     Route: 048
  20. THIOCOLCHICOSIDE [Concomitant]
     Dosage: AS REQUIRED
     Route: 048
  21. SIMVASTATIN [Concomitant]
     Route: 048

REACTIONS (2)
  - CEREBRAL HAEMATOMA [None]
  - CONVULSION [None]
